FAERS Safety Report 7797997-9 (Version None)
Quarter: 2011Q4

REPORT INFORMATION
  Report Type: 
  Country: None (occurrence: None)
  Receive Date: 20111005
  Receipt Date: 20110929
  Transmission Date: 20120403
  Serious: Yes (Other)
  Sender: FDA-Public Use
  Company Number: FR-GLAXOSMITHKLINE-B0752257A

PATIENT
  Sex: Male

DRUGS (4)
  1. BECONASE [Suspect]
     Indication: VIRAL INFECTION
     Dosage: 1PUFF TWICE PER DAY
     Route: 045
     Dates: start: 20110929, end: 20110929
  2. PRORHINEL [Concomitant]
     Indication: VIRAL INFECTION
     Dates: start: 20110901, end: 20110929
  3. VENTOLIN [Concomitant]
     Indication: ASTHMA
  4. ACETAMINOPHEN [Concomitant]
     Indication: VIRAL INFECTION
     Dosage: 1.2G PER DAY
     Dates: start: 20110929, end: 20110929

REACTIONS (4)
  - MALAISE [None]
  - FACE OEDEMA [None]
  - URTICARIA [None]
  - HYPERSENSITIVITY [None]
